FAERS Safety Report 11336102 (Version 2)
Quarter: 2015Q3

REPORT INFORMATION
  Report Type: Spontaneous
  Country: US (occurrence: US)
  Receive Date: 20150804
  Receipt Date: 20150925
  Transmission Date: 20151125
  Serious: Yes (Hospitalization)
  Sender: FDA-Public Use
  Company Number: PHEH2015US014848

PATIENT
  Sex: Female

DRUGS (5)
  1. TOBI [Suspect]
     Active Substance: TOBRAMYCIN
     Dosage: 1 DF, BID
     Route: 055
  2. SODIUM CHLORIDE. [Concomitant]
     Active Substance: SODIUM CHLORIDE
     Indication: CYSTIC FIBROSIS
     Dosage: 7 %, BID
     Route: 055
  3. PULMOZYME [Concomitant]
     Active Substance: DORNASE ALFA
     Indication: CYSTIC FIBROSIS
     Dosage: 1 MG, BID
     Route: 055
  4. TOBI [Suspect]
     Active Substance: TOBRAMYCIN
     Dosage: 1 DF, BID
     Route: 055
     Dates: start: 20150630
  5. TOBI [Suspect]
     Active Substance: TOBRAMYCIN
     Indication: CYSTIC FIBROSIS
     Dosage: 1 DF, BID
     Route: 055
     Dates: start: 20150407

REACTIONS (1)
  - Unevaluable event [Recovered/Resolved]
